FAERS Safety Report 8802627 (Version 1)
Quarter: 2012Q4

REPORT INFORMATION
  Report Type: 
  Country: US (occurrence: US)
  Receive Date: 20120921
  Receipt Date: 20120921
  Transmission Date: 20130627
  Serious: Yes (Hospitalization)
  Sender: FDA-Public Use
  Company Number: US-VERTEX PHARMACEUTICAL INC.-AE-2012-011290

PATIENT
  Age: 44 Year
  Sex: Female
  Weight: 54 kg

DRUGS (9)
  1. INCIVEK [Suspect]
     Indication: HEPATITIS C
     Dosage: 750 mg, tid
     Route: 048
     Dates: start: 20120710, end: 20120711
  2. PEGASYS [Suspect]
     Indication: HEPATITIS C
     Dosage: 180 UNK, UNK
     Route: 058
     Dates: start: 20120710, end: 20120711
  3. PEGASYS [Suspect]
     Dosage: UNK
  4. RIBAVIRIN [Suspect]
     Indication: HEPATITIS C
     Dosage: 400 mg, bid
     Route: 048
     Dates: start: 20120710, end: 20120711
  5. VIVELLE DOT [Concomitant]
     Dosage: 1 Patch, q72h
     Route: 061
  6. AMBIEN [Concomitant]
     Dosage: 10 mg, qd
     Route: 048
  7. VISTARIL /00058402/ [Concomitant]
     Dosage: 50 mg, qd
     Route: 048
  8. BUSPAR [Concomitant]
     Dosage: 10 mg, tid
     Route: 048
  9. NYQUIL [Concomitant]
     Dosage: UNK, qd

REACTIONS (1)
  - Pancreatitis [Not Recovered/Not Resolved]
